FAERS Safety Report 18864546 (Version 2)
Quarter: 2021Q2

REPORT INFORMATION
  Report Type: Spontaneous
  Country: CN (occurrence: CN)
  Receive Date: 20210208
  Receipt Date: 20210428
  Transmission Date: 20210717
  Serious: Yes (Hospitalization)
  Sender: FDA-Public Use
  Company Number: CN-PFIZER INC-2021093638

PATIENT
  Age: 55 Year
  Sex: Female

DRUGS (4)
  1. MEROPENEM. [Suspect]
     Active Substance: MEROPENEM
     Indication: PNEUMONIA
     Dosage: 0.500 G, 1X/DAY
     Route: 041
     Dates: start: 20201215, end: 20210108
  2. LINEZOLID. [Suspect]
     Active Substance: LINEZOLID
     Indication: DIARRHOEA
  3. MEROPENEM. [Suspect]
     Active Substance: MEROPENEM
     Indication: DIARRHOEA
  4. LINEZOLID. [Suspect]
     Active Substance: LINEZOLID
     Indication: PNEUMONIA
     Dosage: 600.000 MG, 2X/DAY
     Route: 041
     Dates: start: 20201215, end: 20210108

REACTIONS (3)
  - Diarrhoea [Not Recovered/Not Resolved]
  - Cardiac arrest [Unknown]
  - Drug ineffective [Unknown]

NARRATIVE: CASE EVENT DATE: 202101
